FAERS Safety Report 24764862 (Version 1)
Quarter: 2024Q4

REPORT INFORMATION
  Report Type: Spontaneous
  Country: CA (occurrence: CA)
  Receive Date: 20241223
  Receipt Date: 20241223
  Transmission Date: 20250115
  Serious: Yes (Hospitalization)
  Sender: CELLTRION
  Company Number: CA-PFIZER INC-202400327197

PATIENT

DRUGS (13)
  1. INFLECTRA [Suspect]
     Active Substance: INFLIXIMAB-DYYB
     Indication: Rheumatoid arthritis
     Dosage: 600 MG, EVERY 6 WEEKS
     Route: 042
     Dates: start: 20241101
  2. INFLECTRA [Suspect]
     Active Substance: INFLIXIMAB-DYYB
     Dosage: 600 MG EVERY 6 WEEKS
     Route: 042
     Dates: start: 20241213
  3. AZATHIOPRINE [Concomitant]
     Active Substance: AZATHIOPRINE
     Dosage: 150 MG, 1X/DAY
     Route: 048
  4. CANDESARTAN [Concomitant]
     Active Substance: CANDESARTAN
     Indication: Hypertension
     Dosage: 4 MG, 1X/DAY
     Dates: start: 20180326
  5. LEVEMIR [Concomitant]
     Active Substance: INSULIN DETEMIR
     Dosage: 1 DF(16 UNITS IN AM / 180 UNITS AT BEDTIME
  6. LOSEC [Concomitant]
     Active Substance: OMEPRAZOLE
     Dosage: 20 MG, 1X/DAY
     Route: 048
  7. MAGNESIUM [Concomitant]
     Active Substance: MAGNESIUM
     Dosage: 1 DF
  8. MESALAMINE [Concomitant]
     Active Substance: MESALAMINE
     Dosage: 1 DF, 1X/DAY(3.6)
     Route: 048
  9. METOCLOPRAMIDE [Concomitant]
     Active Substance: METOCLOPRAMIDE
     Dosage: 5MG IN AM /10MG AT LUNCH AND DINNER OD
     Route: 048
  10. NOVORAPID [Concomitant]
     Active Substance: INSULIN ASPART
     Dosage: 1 DF (SLIDING SCALE ON CARBOHYDRATE COUNTING WITH 2:1 RATIO -3X/DAY
  11. FISH OIL [Concomitant]
     Active Substance: FISH OIL
     Dosage: 1 DF, 1X/DAY
  12. ALBUTEROL [Concomitant]
     Active Substance: ALBUTEROL
     Dosage: 1 DF, AS NEEDED
     Route: 055
  13. CHOLECALCIFEROL [Concomitant]
     Active Substance: CHOLECALCIFEROL
     Dosage: 1 DF

REACTIONS (1)
  - Asthma [Recovered/Resolved]

NARRATIVE: CASE EVENT DATE: 20241101
